FAERS Safety Report 10510746 (Version 1)
Quarter: 2014Q3

REPORT INFORMATION
  Report Type: Spontaneous
  Country: US (occurrence: None)
  Receive Date: 20140924
  Receipt Date: 20140924
  Transmission Date: 20150326
  Serious: Yes (Death, Hospitalization)
  Sender: FDA-Public Use
  Company Number: 2013STPI000410

PATIENT
  Age: 84 Year
  Sex: Female

DRUGS (1)
  1. MATULANE [Suspect]
     Active Substance: PROCARBAZINE HYDROCHLORIDE
     Indication: HODGKIN^S DISEASE
     Route: 048
     Dates: start: 201305, end: 201310

REACTIONS (2)
  - Pyrexia [None]
  - Disease progression [None]

NARRATIVE: CASE EVENT DATE: 20131001
